FAERS Safety Report 9635535 (Version 1)
Quarter: 2013Q4

REPORT INFORMATION
  Report Type: Spontaneous
  Country: US (occurrence: US)
  Receive Date: 20131021
  Receipt Date: 20131021
  Transmission Date: 20140711
  Serious: No
  Sender: FDA-Public Use
  Company Number: US-PURDUE-USA-2013-0103718

PATIENT
  Age: 59 Year
  Sex: Female

DRUGS (2)
  1. BUTRANS [Suspect]
     Indication: RHEUMATOID ARTHRITIS
     Dosage: 5 MCG/HR, UNK
     Route: 062
  2. VALIUM                             /00017001/ [Concomitant]
     Indication: PRODUCT USED FOR UNKNOWN INDICATION

REACTIONS (1)
  - Rash [Recovered/Resolved]
